FAERS Safety Report 4324728-7 (Version None)
Quarter: 2004Q1

REPORT INFORMATION
  Report Type: 
  Country: None (occurrence: None)
  Receive Date: 20040326
  Receipt Date: 20030407
  Transmission Date: 20041129
  Serious: Yes (Disabling, Other)
  Sender: FDA-Public Use
  Company Number: WAES 0304USA00834

PATIENT
  Age: 62 Year
  Sex: Male
  Weight: 111 kg

DRUGS (9)
  1. [THERAPY UNSPECIFIED] [Concomitant]
     Indication: PAIN
  2. TENORMIN [Concomitant]
     Indication: HYPERTENSION
     Dates: start: 19830101, end: 20010830
  3. TENORMIN [Concomitant]
     Indication: HEART RATE INCREASED
     Dates: start: 19830101, end: 20010830
  4. LANOXIN [Concomitant]
     Dates: start: 20010124, end: 20031210
  5. GLYBURIDE [Concomitant]
     Indication: DIABETES MELLITUS
     Dates: start: 19930101, end: 20030601
  6. ZESTRIL [Concomitant]
     Indication: DIABETES MELLITUS
     Dates: start: 19980101, end: 20031210
  7. ZESTRIL [Concomitant]
     Indication: PROPHYLAXIS
     Dates: start: 19980101, end: 20031210
  8. METFORMIN [Concomitant]
     Dates: start: 19930101, end: 20030601
  9. VIOXX [Suspect]
     Indication: ARTHRALGIA
     Route: 048
     Dates: start: 20010101, end: 20010830

REACTIONS (10)
  - BLOOD CHOLESTEROL INCREASED [None]
  - CARDIAC FAILURE [None]
  - CORONARY ARTERY DISEASE [None]
  - DEPRESSION [None]
  - DRUG HYPERSENSITIVITY [None]
  - HYPOAESTHESIA [None]
  - IMPAIRED WORK ABILITY [None]
  - INJURY [None]
  - MYOCARDIAL INFARCTION [None]
  - PEPTIC ULCER [None]
